FAERS Safety Report 9437333 (Version 3)
Quarter: 2013Q3

REPORT INFORMATION
  Report Type: Report from Study
  Country: UY (occurrence: UY)
  Receive Date: 20130802
  Receipt Date: 20130815
  Transmission Date: 20140515
  Serious: Yes (Death, Hospitalization)
  Sender: FDA-Public Use
  Company Number: UY-ROCHE-1255040

PATIENT
  Sex: Male

DRUGS (2)
  1. XELODA [Suspect]
     Indication: RECTAL CANCER METASTATIC
     Dosage: DOSAGE: 1500 MG AM AND 2000 MG PM
     Route: 048
     Dates: start: 20130711
  2. OXALIPLATIN [Concomitant]
     Route: 065

REACTIONS (5)
  - Death [Fatal]
  - Dehydration [Not Recovered/Not Resolved]
  - Diarrhoea [Unknown]
  - Blood test abnormal [Unknown]
  - Hiccups [Not Recovered/Not Resolved]
